FAERS Safety Report 7821827-X (Version None)
Quarter: 2011Q4

REPORT INFORMATION
  Report Type: 
  Country: None (occurrence: None)
  Receive Date: 20111018
  Receipt Date: 20110712
  Transmission Date: 20120403
  Serious: No
  Sender: FDA-Public Use
  Company Number: US-ASTRAZENECA-2011SE41878

PATIENT
  Sex: Female

DRUGS (2)
  1. SYMBICORT [Suspect]
     Indication: ASTHMA
     Dosage: 160/4.5  UNKNOWN AEROSOL
     Route: 055
  2. SYMBICORT [Suspect]
     Dosage: 80/4.5, TWO TIMES A DAY
     Route: 055
     Dates: start: 20110701

REACTIONS (4)
  - NAUSEA [None]
  - DYSPNOEA [None]
  - HEADACHE [None]
  - ABDOMINAL PAIN UPPER [None]
